FAERS Safety Report 13840646 (Version 1)
Quarter: 2017Q3

REPORT INFORMATION
  Report Type: Spontaneous
  Country: US (occurrence: US)
  Receive Date: 20170807
  Receipt Date: 20170807
  Transmission Date: 20171127
  Serious: No
  Sender: FDA-Public Use
  Company Number: US-LEXICON PHARMACEUTICALS, INC-17-1606-00524

PATIENT
  Age: 70 Year
  Sex: Female

DRUGS (22)
  1. LOW DOSE ASPIRIN [Concomitant]
     Active Substance: ASPIRIN
  2. LOPERAMIDE [Concomitant]
     Active Substance: LOPERAMIDE
  3. VITAMIN C [Concomitant]
     Active Substance: ASCORBIC ACID
  4. GAS-X [Concomitant]
     Active Substance: DIMETHICONE
  5. LISINOPRIL. [Concomitant]
     Active Substance: LISINOPRIL
  6. CRANBERRY. [Concomitant]
     Active Substance: CRANBERRY
  7. SIMVASTATIN. [Concomitant]
     Active Substance: SIMVASTATIN
  8. GABAPENTIN. [Concomitant]
     Active Substance: GABAPENTIN
  9. ATENOLOL. [Concomitant]
     Active Substance: ATENOLOL
  10. CALCIUM [Concomitant]
     Active Substance: CALCIUM
  11. SANDOSTATIN IR [Concomitant]
  12. HYDROCODONE BITARTRATE AND ACETAMINOPHEN [Concomitant]
     Active Substance: ACETAMINOPHEN\HYDROCODONE BITARTRATE
  13. TELOTRISTAT ETHYL [Suspect]
     Active Substance: TELOTRISTAT ETHYL
     Indication: CARCINOID SYNDROME
     Route: 048
     Dates: start: 20170614
  14. ONDANSETRON [Concomitant]
     Active Substance: ONDANSETRON
  15. SPIRONOLACTONE. [Concomitant]
     Active Substance: SPIRONOLACTONE
  16. VITAMIN D3 [Concomitant]
     Active Substance: CHOLECALCIFEROL
  17. XANAX [Concomitant]
     Active Substance: ALPRAZOLAM
  18. FUROSEMIDE. [Concomitant]
     Active Substance: FUROSEMIDE
  19. POTASSIUM CHLORIDE. [Concomitant]
     Active Substance: POTASSIUM CHLORIDE
  20. MELOXICAM. [Concomitant]
     Active Substance: MELOXICAM
  21. MULTIVITAMIN [Concomitant]
     Active Substance: VITAMINS
  22. FISH OIL [Concomitant]
     Active Substance: FISH OIL

REACTIONS (2)
  - Flatulence [Not Recovered/Not Resolved]
  - Flushing [Not Recovered/Not Resolved]

NARRATIVE: CASE EVENT DATE: 201706
